FAERS Safety Report 9288219 (Version 1)
Quarter: 2013Q2

REPORT INFORMATION
  Report Type: Report from Study
  Country: CA (occurrence: CA)
  Receive Date: 20130514
  Receipt Date: 20130514
  Transmission Date: 20140414
  Serious: Yes (Other)
  Sender: FDA-Public Use
  Company Number: CA-JNJFOC-20130505993

PATIENT
  Age: 55 Year
  Sex: Male
  Weight: 88.9 kg

DRUGS (7)
  1. REMICADE [Suspect]
     Indication: CROHN^S DISEASE
     Dosage: 23RD INFUSION
     Route: 042
     Dates: start: 20130215
  2. REMICADE [Suspect]
     Indication: CROHN^S DISEASE
     Route: 042
     Dates: start: 20100329
  3. VITAMIN B [Concomitant]
     Route: 065
  4. TUMS [Concomitant]
     Route: 065
  5. QUESTRAN [Concomitant]
     Route: 065
  6. SULFASALAZINE [Concomitant]
     Route: 048
  7. PREDNISONE [Concomitant]
     Route: 048

REACTIONS (1)
  - Nephrolithiasis [Not Recovered/Not Resolved]
